FAERS Safety Report 20208738 (Version 1)
Quarter: 2021Q4

REPORT INFORMATION
  Report Type: Spontaneous
  Country: US (occurrence: None)
  Receive Date: 20211220
  Receipt Date: 20211220
  Transmission Date: 20220303
  Serious: Yes (Other)
  Sender: FDA-Public Use
  Company Number: None

PATIENT
  Age: 20 Year
  Sex: Male
  Weight: 92.4 kg

DRUGS (8)
  1. ENBREL [Suspect]
     Active Substance: ETANERCEPT
     Indication: Juvenile idiopathic arthritis
     Dosage: OTHER FREQUENCY : WEEKLY;?
     Route: 058
     Dates: start: 20210801, end: 20210831
  2. ENBREL [Suspect]
     Active Substance: ETANERCEPT
     Indication: Juvenile psoriatic arthritis
  3. ZYRTEC [Concomitant]
     Active Substance: CETIRIZINE HYDROCHLORIDE
  4. VITAMIN D3 [Concomitant]
     Active Substance: CHOLECALCIFEROL
  5. FLONASE [Concomitant]
     Active Substance: FLUTICASONE PROPIONATE
  6. MOTRIN [Concomitant]
     Active Substance: IBUPROFEN
  7. MELATONIN [Concomitant]
     Active Substance: MELATONIN
  8. VITAMINS [Concomitant]
     Active Substance: VITAMINS

REACTIONS (3)
  - Giant cell tumour of tendon sheath [None]
  - Cyst [None]
  - Therapy cessation [None]

NARRATIVE: CASE EVENT DATE: 20210801
